FAERS Safety Report 4510523-2 (Version None)
Quarter: 2004Q4

REPORT INFORMATION
  Report Type: 
  Country: None (occurrence: None)
  Receive Date: 20041122
  Receipt Date: 20041108
  Transmission Date: 20050328
  Serious: Yes (Other)
  Sender: FDA-Public Use
  Company Number: EM2004-0574

PATIENT
  Age: 53 Year
  Sex: Male

DRUGS (1)
  1. PROLEUKIN [Suspect]
     Indication: MALIGNANT MELANOMA
     Dosage: 0.6 MIU/KG, Q8H, IV BOLUS
     Route: 040

REACTIONS (15)
  - AKINESIA [None]
  - ANURIA [None]
  - ATRIAL FIBRILLATION [None]
  - BLOOD PRESSURE SYSTOLIC INCREASED [None]
  - BRADYCARDIA [None]
  - CARDIAC ANEURYSM [None]
  - EJECTION FRACTION DECREASED [None]
  - HYPOKINESIA [None]
  - HYPOTENSION [None]
  - INTRACARDIAC THROMBUS [None]
  - MYOCARDIAL INFARCTION [None]
  - MYOCARDITIS [None]
  - PERIRECTAL ABSCESS [None]
  - RENAL FAILURE ACUTE [None]
  - SUPRAVENTRICULAR TACHYCARDIA [None]
